FAERS Safety Report 5623949-0 (Version None)
Quarter: 2008Q1

REPORT INFORMATION
  Report Type: 
  Country: None (occurrence: None)
  Receive Date: 20080204
  Receipt Date: 20080123
  Transmission Date: 20080703
  Serious: Yes (Other)
  Sender: FDA-Public Use
  Company Number: THYM-1000513

PATIENT

DRUGS (1)
  1. THYMOGLOBULIN [Suspect]

REACTIONS (1)
  - LIVER TRANSPLANT REJECTION [None]
